FAERS Safety Report 25207209 (Version 1)
Quarter: 2025Q2

REPORT INFORMATION
  Report Type: Spontaneous
  Country: UA (occurrence: UA)
  Receive Date: 20250417
  Receipt Date: 20250417
  Transmission Date: 20250716
  Serious: Yes (Hospitalization)
  Sender: AUROBINDO
  Company Number: UA-AUROBINDO-AUR-APL-2025-019333

PATIENT
  Sex: Female

DRUGS (4)
  1. MEROPENEM [Suspect]
     Active Substance: MEROPENEM
     Indication: Sepsis
     Route: 065
  2. CLINDAMYCIN [Suspect]
     Active Substance: CLINDAMYCIN
     Indication: Sepsis
     Route: 042
  3. HEPARIN [Suspect]
     Active Substance: HEPARIN SODIUM
     Indication: Embolism
     Route: 065
  4. PENTOXIFYLLINE [Suspect]
     Active Substance: PENTOXIFYLLINE
     Indication: Embolism
     Route: 065

REACTIONS (3)
  - Drug ineffective [Unknown]
  - Oedema [Recovered/Resolved]
  - Cyanosis [Recovered/Resolved]
